FAERS Safety Report 8990235 (Version 3)
Quarter: 2013Q1

REPORT INFORMATION
  Report Type: Spontaneous
  Country: ES (occurrence: DE)
  Receive Date: 20121228
  Receipt Date: 20130116
  Transmission Date: 20140127
  Serious: Yes (Other)
  Sender: FDA-Public Use
  Company Number: DE-FRI-1000041293

PATIENT
  Age: 69 Year
  Sex: Female

DRUGS (4)
  1. ACLIDINIUM BROMIDE [Suspect]
     Indication: CHRONIC OBSTRUCTIVE PULMONARY DISEASE
     Dosage: 644 MCG
     Route: 055
     Dates: start: 20121210
  2. L-THYROXIN [Concomitant]
  3. NITROSPRAY [Concomitant]
  4. BUDECORT [Concomitant]

REACTIONS (4)
  - Dyspnoea [Recovered/Resolved]
  - Hyperventilation [Recovered/Resolved]
  - Arrhythmia [None]
  - Chest discomfort [None]
